FAERS Safety Report 7758363-5 (Version None)
Quarter: 2011Q3

REPORT INFORMATION
  Report Type: 
  Country: None (occurrence: None)
  Receive Date: 20110919
  Receipt Date: 20110909
  Transmission Date: 20111222
  Serious: Yes (Other)
  Sender: FDA-Public Use
  Company Number: NO-SHIRE-ALL1-2011-03240

PATIENT
  Sex: Male

DRUGS (2)
  1. BERINERT [Concomitant]
     Indication: HEREDITARY ANGIOEDEMA
     Dosage: UNK, UNKNOWN
     Route: 065
  2. FIRAZYR [Suspect]
     Indication: HEREDITARY ANGIOEDEMA
     Dosage: 30 MG, AS REQ'D
     Route: 058
     Dates: start: 20110501

REACTIONS (2)
  - CHEST PAIN [None]
  - HYPERTENSION [None]
